FAERS Safety Report 16323485 (Version 1)
Quarter: 2019Q2

REPORT INFORMATION
  Report Type: Spontaneous
  Country: PT (occurrence: PT)
  Receive Date: 20190517
  Receipt Date: 20190517
  Transmission Date: 20190711
  Serious: Yes (Other)
  Sender: FDA-Public Use
  Company Number: PT-ROCHE-2317319

PATIENT
  Age: 38 Year
  Sex: Female

DRUGS (21)
  1. GOSERELIN [Suspect]
     Active Substance: GOSERELIN
     Indication: BREAST CANCER STAGE III
     Route: 065
     Dates: start: 201710, end: 201803
  2. LAPATINIB [Suspect]
     Active Substance: LAPATINIB
     Indication: BREAST CANCER STAGE III
     Route: 065
     Dates: start: 201702, end: 201709
  3. EXEMESTANE. [Suspect]
     Active Substance: EXEMESTANE
     Indication: BREAST CANCER STAGE III
     Dosage: UNK
     Route: 065
     Dates: start: 201807, end: 201903
  4. TRASTUZUMAB. [Suspect]
     Active Substance: TRASTUZUMAB
     Route: 065
     Dates: start: 201602, end: 201609
  5. CAPECITABINE. [Suspect]
     Active Substance: CAPECITABINE
     Dosage: UNK
     Route: 065
     Dates: start: 201702, end: 201709
  6. LETROZOLE. [Suspect]
     Active Substance: LETROZOLE
     Indication: BREAST CANCER STAGE III
     Dosage: UNK
     Route: 065
     Dates: start: 201805, end: 201806
  7. DENOSUMAB [Suspect]
     Active Substance: DENOSUMAB
     Route: 065
     Dates: start: 201805, end: 201806
  8. GOSERELIN [Suspect]
     Active Substance: GOSERELIN
     Route: 065
     Dates: start: 201807, end: 201903
  9. TRASTUZUMAB. [Suspect]
     Active Substance: TRASTUZUMAB
     Dosage: UNK
     Route: 065
     Dates: start: 201804, end: 201804
  10. DENOSUMAB [Suspect]
     Active Substance: DENOSUMAB
     Indication: BREAST CANCER STAGE III
     Route: 065
     Dates: start: 201804, end: 201804
  11. GOSERELIN [Suspect]
     Active Substance: GOSERELIN
     Route: 065
     Dates: start: 201805, end: 201806
  12. LAPATINIB [Suspect]
     Active Substance: LAPATINIB
     Route: 065
     Dates: start: 201710, end: 201803
  13. CAPECITABINE. [Suspect]
     Active Substance: CAPECITABINE
     Dosage: UNK
     Route: 065
     Dates: start: 201710, end: 201903
  14. DENOSUMAB [Suspect]
     Active Substance: DENOSUMAB
     Route: 065
     Dates: start: 20180301
  15. LAPATINIB [Suspect]
     Active Substance: LAPATINIB
     Route: 065
     Dates: start: 201805, end: 201806
  16. LAPATINIB [Suspect]
     Active Substance: LAPATINIB
     Route: 065
     Dates: start: 201807, end: 201903
  17. CAPECITABINE. [Suspect]
     Active Substance: CAPECITABINE
     Indication: BREAST CANCER STAGE III
     Dosage: UNK
     Route: 048
     Dates: start: 201609, end: 201701
  18. TRASTUZUMAB. [Suspect]
     Active Substance: TRASTUZUMAB
     Dosage: UNK
     Route: 065
     Dates: start: 201805, end: 201806
  19. CISPLATIN. [Suspect]
     Active Substance: CISPLATIN
     Indication: BREAST CANCER STAGE III
     Dosage: UNK
     Route: 065
     Dates: start: 201804, end: 201804
  20. TRASTUZUMAB. [Suspect]
     Active Substance: TRASTUZUMAB
     Indication: BREAST CANCER STAGE III
     Dosage: UNK
     Route: 065
     Dates: start: 201710, end: 201803
  21. EVEROLIMUS. [Suspect]
     Active Substance: EVEROLIMUS
     Indication: BREAST CANCER STAGE III
     Dosage: UNK
     Route: 065
     Dates: start: 201807, end: 201903

REACTIONS (6)
  - Skin lesion [Unknown]
  - Therapeutic response decreased [Unknown]
  - Malignant neoplasm progression [Unknown]
  - Dermatitis [Unknown]
  - Inappropriate schedule of product administration [Unknown]
  - Metastases to skin [Unknown]
